FAERS Safety Report 7556500-9 (Version None)
Quarter: 2011Q2

REPORT INFORMATION
  Report Type: 
  Country: None (occurrence: None)
  Receive Date: 20110609
  Receipt Date: 20110602
  Transmission Date: 20111010
  Serious: Yes (Death, Hospitalization, Other)
  Sender: FDA-Public Use
  Company Number: 2011SP025857

PATIENT
  Age: 40 Year
  Sex: Female

DRUGS (4)
  1. LAMOTRIGINE [Suspect]
     Indication: MAJOR DEPRESSION
  2. REMERON [Suspect]
     Indication: MAJOR DEPRESSION
  3. QUETIAPINE FUMARATE [Suspect]
     Indication: MAJOR DEPRESSION
  4. VENLAFAXINE [Suspect]
     Indication: MAJOR DEPRESSION

REACTIONS (10)
  - CARDIAC ARREST [None]
  - ENTEROCOCCUS TEST POSITIVE [None]
  - CELLULITIS [None]
  - ORAL CANDIDIASIS [None]
  - SEPTIC SHOCK [None]
  - CONVULSION [None]
  - FEBRILE NEUTROPENIA [None]
  - MULTI-ORGAN FAILURE [None]
  - ASPERGILLUS TEST POSITIVE [None]
  - PHARYNGITIS [None]
